FAERS Safety Report 5589510-1 (Version None)
Quarter: 2008Q1

REPORT INFORMATION
  Report Type: 
  Country: None (occurrence: None)
  Receive Date: 20080114
  Receipt Date: 20080102
  Transmission Date: 20080703
  Serious: Yes (Death)
  Sender: FDA-Public Use
  Company Number: US-AMGEN-QUU259057

PATIENT
  Sex: Female
  Weight: 115.3 kg

DRUGS (6)
  1. ENBREL [Suspect]
     Indication: RHEUMATOID ARTHRITIS
     Route: 058
     Dates: start: 20070910, end: 20071226
  2. TOPROL-XL [Concomitant]
     Route: 048
  3. ENALAPRIL MALEATE [Concomitant]
     Route: 048
     Dates: start: 20040101
  4. HYDROCHLOROTHIAZIDE [Concomitant]
     Route: 048
     Dates: start: 20040101
  5. METHOTREXATE [Concomitant]
     Route: 048
     Dates: start: 20061101
  6. HYDROXYCHLOROQUINE [Concomitant]
     Route: 048
     Dates: start: 20070101

REACTIONS (1)
  - MYOCARDIAL INFARCTION [None]
